FAERS Safety Report 24910725 (Version 1)
Quarter: 2025Q1

REPORT INFORMATION
  Report Type: Report from Study
  Country: US (occurrence: US)
  Receive Date: 20250131
  Receipt Date: 20250131
  Transmission Date: 20250408
  Serious: Yes (Death, Other)
  Sender: ACADIA PHARMACEUTICALS
  Company Number: US-ACADIA PHARMACEUTICALS INC.-ACA-2025-PIM-001001

PATIENT
  Age: 84 Year
  Sex: Male

DRUGS (23)
  1. NUPLAZID [Suspect]
     Active Substance: PIMAVANSERIN TARTRATE
     Indication: Parkinson^s disease psychosis
     Dosage: 34 MILLIGRAM, QD
     Route: 048
     Dates: start: 20170526, end: 20250113
  2. AMLODIPINE [Concomitant]
     Active Substance: AMLODIPINE BESYLATE
  3. ASPIRIN [Concomitant]
     Active Substance: ASPIRIN
  4. ATORVASTATIN [Concomitant]
     Active Substance: ATORVASTATIN
  5. CHOLECALCIFEROL [Concomitant]
     Active Substance: CHOLECALCIFEROL
  6. CLONAZEPAM [Concomitant]
     Active Substance: CLONAZEPAM
  7. CLONIDINE [Concomitant]
     Active Substance: CLONIDINE
     Route: 062
  8. CLOPIDOGREL [Concomitant]
     Active Substance: CLOPIDOGREL BISULFATE
  9. DONEPEZIL [Concomitant]
     Active Substance: DONEPEZIL
  10. ENTACAPONE [Concomitant]
     Active Substance: ENTACAPONE
  11. HYDRALAZINE [Concomitant]
     Active Substance: HYDRALAZINE HYDROCHLORIDE
  12. NOURIANZ [Concomitant]
     Active Substance: ISTRADEFYLLINE
  13. LISINOPRIL [Concomitant]
     Active Substance: LISINOPRIL
  14. MELATONIN [Concomitant]
     Active Substance: MELATONIN
  15. VITAMINS NOS [Concomitant]
     Active Substance: VITAMINS
     Indication: Vitamin supplementation
  16. MYRBETRIQ [Concomitant]
     Active Substance: MIRABEGRON
  17. OXYBUTYNIN [Concomitant]
     Active Substance: OXYBUTYNIN
  18. POLYETHYLENE GLYCOL 3350 [Concomitant]
     Active Substance: POLYETHYLENE GLYCOL 3350
  19. QUETIAPINE [Concomitant]
     Active Substance: QUETIAPINE
  20. RYTARY [Concomitant]
     Active Substance: CARBIDOPA\LEVODOPA
  21. SERTRALINE [Concomitant]
     Active Substance: SERTRALINE HYDROCHLORIDE
  22. TAMSULOSIN [Concomitant]
     Active Substance: TAMSULOSIN
  23. TIZANIDINE [Concomitant]
     Active Substance: TIZANIDINE

REACTIONS (1)
  - Death [Fatal]

NARRATIVE: CASE EVENT DATE: 20250113
